FAERS Safety Report 9082557 (Version 1)
Quarter: 2013Q1

REPORT INFORMATION
  Report Type: Spontaneous
  Country: US (occurrence: US)
  Receive Date: 20130130
  Receipt Date: 20130130
  Transmission Date: 20140127
  Serious: No
  Sender: FDA-Public Use
  Company Number: US-ABBOTT-12P-163-0952941-00

PATIENT
  Age: 21 Year
  Sex: Female
  Weight: 65.83 kg

DRUGS (4)
  1. HUMIRA 40 MG/0.8 ML PEN [Suspect]
     Indication: COLITIS ULCERATIVE
     Route: 058
     Dates: start: 20120606, end: 20120606
  2. HUMIRA 40 MG/0.8 ML PEN [Suspect]
     Route: 058
     Dates: start: 20120620, end: 20120620
  3. PENTASA [Concomitant]
     Indication: COLITIS ULCERATIVE
  4. 6-MP [Concomitant]
     Indication: COLITIS ULCERATIVE

REACTIONS (1)
  - Off label use [Not Recovered/Not Resolved]
